FAERS Safety Report 5124402-3 (Version None)
Quarter: 2006Q4

REPORT INFORMATION
  Report Type: 
  Country: None (occurrence: None)
  Receive Date: 20061010
  Receipt Date: 20061002
  Transmission Date: 20070319
  Serious: Yes (Hospitalization)
  Sender: FDA-Public Use
  Company Number: GB-MERCK-0610GBR00030

PATIENT
  Age: 40 Year
  Sex: Female

DRUGS (1)
  1. ALDOMET [Suspect]
     Indication: HYPERTENSION
     Route: 048

REACTIONS (12)
  - ALANINE AMINOTRANSFERASE INCREASED [None]
  - BLOOD ALKALINE PHOSPHATASE INCREASED [None]
  - BLOOD BILIRUBIN INCREASED [None]
  - CHROMATURIA [None]
  - FATIGUE [None]
  - GAMMA-GLUTAMYLTRANSFERASE INCREASED [None]
  - HEPATITIS [None]
  - MALAISE [None]
  - MYALGIA [None]
  - OCULAR ICTERUS [None]
  - PROTHROMBIN TIME PROLONGED [None]
  - PYREXIA [None]
